FAERS Safety Report 17810119 (Version 3)
Quarter: 2021Q1

REPORT INFORMATION
  Report Type: Report from Study
  Country: None (occurrence: US)
  Receive Date: 20200521
  Receipt Date: 20210209
  Transmission Date: 20210419
  Serious: Yes (Death, Hospitalization, Other)
  Sender: FDA-Public Use
  Company Number: US-ABBVIE-20K-163-3322898-00

PATIENT
  Age: 91 Year
  Sex: Male

DRUGS (3)
  1. RITUXIMAB. [Suspect]
     Active Substance: RITUXIMAB
     Indication: PRODUCT USED FOR UNKNOWN INDICATION
     Route: 065
  2. VENCLEXTA [Suspect]
     Active Substance: VENETOCLAX
     Indication: CHRONIC LYMPHOCYTIC LEUKAEMIA
     Route: 048
     Dates: start: 20180319
  3. VENCLEXTA [Suspect]
     Active Substance: VENETOCLAX
     Indication: THROMBOCYTOPENIA
     Dosage: MAINTENANCE DOSE
     Route: 048

REACTIONS (14)
  - Wheezing [Not Recovered/Not Resolved]
  - Leukaemia [Not Recovered/Not Resolved]
  - Peripheral swelling [Unknown]
  - Genital rash [Unknown]
  - Asthenia [Unknown]
  - Immunoglobulins decreased [Unknown]
  - Feeling abnormal [Unknown]
  - White blood cell count increased [Unknown]
  - Granulocyte count decreased [Unknown]
  - Death [Fatal]
  - Breath sounds abnormal [Not Recovered/Not Resolved]
  - Respiratory tract congestion [Not Recovered/Not Resolved]
  - Asthenia [Not Recovered/Not Resolved]
  - Rash [Unknown]

NARRATIVE: CASE EVENT DATE: 2020
